FAERS Safety Report 14843708 (Version 1)
Quarter: 2018Q2

REPORT INFORMATION
  Report Type: Spontaneous
  Country: DE (occurrence: DE)
  Receive Date: 20180503
  Receipt Date: 20180503
  Transmission Date: 20180711
  Serious: Yes (Hospitalization)
  Sender: FDA-Public Use
  Company Number: DE-ROCHE-2113563

PATIENT
  Age: 30 Year
  Sex: Male
  Weight: 73 kg

DRUGS (7)
  1. SANDIMMUN OPTORAL [Suspect]
     Active Substance: CYCLOSPORINE
     Dosage: 25 MG, 1-0-1-0, TABLETTEN
     Route: 048
  2. PREDNISOLON [Suspect]
     Active Substance: PREDNISOLONE
     Indication: PRODUCT USED FOR UNKNOWN INDICATION
     Dosage: 2.5 MG, 1-0-0-0, TABLETS
     Route: 048
  3. SANDIMMUN OPTORAL [Suspect]
     Active Substance: CYCLOSPORINE
     Indication: PRODUCT USED FOR UNKNOWN INDICATION
     Dosage: 10 MG, 1-0-1-0, TABLETTEN
     Route: 048
  4. CELLCEPT [Suspect]
     Active Substance: MYCOPHENOLATE MOFETIL\MYCOPHENOLATE MOFETIL HYDROCHLORIDE
     Indication: PRODUCT USED FOR UNKNOWN INDICATION
     Dosage: 500 MG, 2-0-2-0, TABLETS
     Route: 048
  5. SANDIMMUN OPTORAL [Suspect]
     Active Substance: CYCLOSPORINE
     Dosage: 50 MG, 1-0-1-0, TABLETTEN
     Route: 048
  6. CEFUROXIM [Concomitant]
     Active Substance: CEFUROXIME
     Dosage: 250 MG, 1-0-1-0, TABLETTEN
     Route: 048
  7. RAMIPRIL. [Concomitant]
     Active Substance: RAMIPRIL
     Dosage: 5 MG, 1-0-1, TABLETTEN
     Route: 048

REACTIONS (4)
  - General physical health deterioration [Unknown]
  - Pyrexia [Unknown]
  - Diarrhoea [Unknown]
  - Infection in an immunocompromised host [Unknown]
